FAERS Safety Report 4320847-X (Version None)
Quarter: 2004Q1

REPORT INFORMATION
  Report Type: 
  Country: None (occurrence: None)
  Receive Date: 20040322
  Receipt Date: 20040312
  Transmission Date: 20041129
  Serious: Yes (Hospitalization)
  Sender: FDA-Public Use
  Company Number: PHBS2004JP03421

PATIENT
  Age: 65 Year
  Sex: Female

DRUGS (7)
  1. STARSIS #AJ [Suspect]
     Indication: DIABETES MELLITUS
     Dosage: 270 MG/DAY
     Route: 048
     Dates: start: 20030618, end: 20040207
  2. MELBIN [Suspect]
     Indication: DIABETES MELLITUS
     Dosage: 0.9 MG/DAY
     Route: 048
     Dates: start: 20030618, end: 20040207
  3. BASEN [Suspect]
     Indication: DIABETES MELLITUS
     Dosage: 0.9 MG/DAY
     Route: 048
     Dates: start: 20030618, end: 20040207
  4. BAYCARON [Suspect]
     Indication: CARDIAC FAILURE CHRONIC
     Dosage: 25 MG/DAY
     Route: 048
     Dates: start: 20030618, end: 20040207
  5. NEUQUINON [Concomitant]
     Indication: CARDIAC FAILURE CHRONIC
     Dosage: 30 MG, UNK
     Dates: start: 20030618, end: 20040207
  6. GASMOTIN [Concomitant]
     Indication: GASTRITIS
     Dosage: 15 MG, UNK
     Dates: start: 20030618, end: 20040207
  7. PURSENNIDE [Concomitant]
     Indication: CONSTIPATION
     Dosage: 24 MG, UNK
     Dates: start: 20030608, end: 20040207

REACTIONS (3)
  - DRUG INTERACTION [None]
  - HYPOGLYCAEMIA [None]
  - LOSS OF CONSCIOUSNESS [None]
